FAERS Safety Report 4954092-1 (Version None)
Quarter: 2006Q1

REPORT INFORMATION
  Report Type: 
  Country: None (occurrence: None)
  Receive Date: 20060327
  Receipt Date: 20060207
  Transmission Date: 20060701
  Serious: Yes (Hospitalization)
  Sender: FDA-Public Use
  Company Number: FR-GLAXOSMITHKLINE-B0409733A

PATIENT
  Age: 40 Year
  Sex: Male
  Weight: 76 kg

DRUGS (6)
  1. TRIZIVIR [Suspect]
     Indication: HIV INFECTION
     Route: 048
  2. BACTRIM [Suspect]
     Dosage: 400MG PER DAY
     Route: 048
  3. SERESTA [Concomitant]
     Route: 048
  4. THERALENE [Concomitant]
     Route: 048
  5. DAFALGAN [Concomitant]
     Route: 048
  6. OSFOLATE [Concomitant]
     Route: 048

REACTIONS (6)
  - ANAEMIA MACROCYTIC [None]
  - BLOOD FOLATE DECREASED [None]
  - NEUTROPENIA [None]
  - PANCYTOPENIA [None]
  - THROMBOCYTOPENIA [None]
  - VITAMIN B12 DECREASED [None]
